FAERS Safety Report 16424417 (Version 1)
Quarter: 2019Q2

REPORT INFORMATION
  Report Type: Report from Study
  Country: US (occurrence: US)
  Receive Date: 20190613
  Receipt Date: 20190613
  Transmission Date: 20190711
  Serious: Yes (Hospitalization, Other)
  Sender: FDA-Public Use
  Company Number: US-BAYER-2019-108298

PATIENT
  Sex: Male
  Weight: 107.94 kg

DRUGS (3)
  1. STIVARGA [Suspect]
     Active Substance: REGORAFENIB
     Indication: RECTAL CANCER
     Dosage: 160 MG, QD DAILY FOR 21 OF 28 DAYS
     Route: 048
     Dates: start: 20190405
  2. LOVENOX [LEVOFLOXACIN] [Concomitant]
  3. ACETAMINOPHEN;OXYCODONE HYDROCHLORIDE [Concomitant]
     Active Substance: ACETAMINOPHEN\OXYCODONE HYDROCHLORIDE

REACTIONS (3)
  - Chest pain [Unknown]
  - Neuropathy peripheral [None]
  - Irritability [None]
